FAERS Safety Report 24871371 (Version 1)
Quarter: 2025Q1

REPORT INFORMATION
  Report Type: Spontaneous
  Country: ES (occurrence: ES)
  Receive Date: 20250122
  Receipt Date: 20250122
  Transmission Date: 20250408
  Serious: Yes (Life-Threatening, Hospitalization, Other)
  Sender: AUROBINDO
  Company Number: ES-AEMPS-1617264

PATIENT
  Age: 21 Year
  Sex: Male

DRUGS (4)
  1. ACETAMINOPHEN [Interacting]
     Active Substance: ACETAMINOPHEN
     Indication: Product used for unknown indication
     Route: 048
     Dates: start: 20241030, end: 20241030
  2. LORAZEPAM [Interacting]
     Active Substance: LORAZEPAM
     Indication: Product used for unknown indication
     Route: 048
     Dates: start: 20241030, end: 20241030
  3. CONCERTA [Concomitant]
     Active Substance: METHYLPHENIDATE HYDROCHLORIDE
     Indication: Schizoaffective disorder
     Dosage: 54 MILLIGRAM, ONCE A DAY
     Route: 048
     Dates: start: 20240122, end: 20241029
  4. VALPROATE SODIUM [Concomitant]
     Active Substance: VALPROATE SODIUM
     Indication: Schizoaffective disorder
     Dosage: 1 GRAM, ONCE A DAY
     Route: 048
     Dates: start: 20240522, end: 20241031

REACTIONS (3)
  - Hepatic cytolysis [Recovered/Resolved]
  - Coagulopathy [Recovered/Resolved]
  - Intentional overdose [Recovered/Resolved]

NARRATIVE: CASE EVENT DATE: 20241030
